FAERS Safety Report 7209746-3 (Version None)
Quarter: 2011Q1

REPORT INFORMATION
  Report Type: 
  Country: None (occurrence: None)
  Receive Date: 20110104
  Receipt Date: 20101222
  Transmission Date: 20110831
  Serious: Yes (Congenital Anomaly)
  Sender: FDA-Public Use
  Company Number: PT-MYLANLABS-2010S1023693

PATIENT
  Age: 2 Day
  Sex: Female

DRUGS (2)
  1. METHYLDOPA [Concomitant]
     Indication: HYPERTENSION
     Route: 064
  2. LISINOPRIL [Suspect]
     Indication: HYPERTENSION
     Route: 064

REACTIONS (5)
  - DRUG EXPOSURE DURING PREGNANCY [None]
  - CONGENITAL MUSCULOSKELETAL ANOMALY [None]
  - MICROCEPHALY [None]
  - HYPERTONIA [None]
  - RENAL FAILURE [None]
